FAERS Safety Report 7294973-X (Version None)
Quarter: 2011Q1

REPORT INFORMATION
  Report Type: 
  Country: None (occurrence: None)
  Receive Date: 20110216
  Receipt Date: 20110203
  Transmission Date: 20110831
  Serious: Yes (Hospitalization)
  Sender: FDA-Public Use
  Company Number: US-ELI_LILLY_AND_COMPANY-US201102001623

PATIENT
  Sex: Female

DRUGS (1)
  1. FORTEO [Suspect]
     Indication: OSTEOPOROSIS
     Dosage: 20 UG, DAILY (1/D)
     Route: 065
     Dates: start: 20091201

REACTIONS (7)
  - FALL [None]
  - WOUND DEHISCENCE [None]
  - BACTERIAL INFECTION [None]
  - INCISION SITE HAEMORRHAGE [None]
  - INCISION SITE PAIN [None]
  - UPPER LIMB FRACTURE [None]
  - HIP ARTHROPLASTY [None]
